FAERS Safety Report 12757156 (Version 2)
Quarter: 2016Q4

REPORT INFORMATION
  Report Type: Spontaneous
  Country: US (occurrence: US)
  Receive Date: 20160918
  Receipt Date: 20161004
  Transmission Date: 20170207
  Serious: Yes (Death)
  Sender: FDA-Public Use
  Company Number: US-ROCHE-1831698

PATIENT
  Sex: Female

DRUGS (1)
  1. HERCEPTIN [Suspect]
     Active Substance: TRASTUZUMAB
     Indication: NEOPLASM MALIGNANT
     Dosage: MALIGNANT NEOPLASM OF LOWER-INNER QUADRANT OF RIGHT FEMALE BREAST
     Route: 042
     Dates: start: 20151218

REACTIONS (1)
  - Death [Fatal]
